FAERS Safety Report 4554671-X (Version None)
Quarter: 2004Q4

REPORT INFORMATION
  Report Type: 
  Country: None (occurrence: None)
  Receive Date: 20041227
  Receipt Date: 20041020
  Transmission Date: 20050328
  Serious: No
  Sender: FDA-Public Use
  Company Number: US096240

PATIENT
  Age: 73 Year
  Sex: Female
  Weight: 98.5 kg

DRUGS (13)
  1. SENSIPAR [Suspect]
     Indication: HYPERPARATHYROIDISM SECONDARY
     Dosage: 60 MG , 1 IN 1 DAYS, PO
     Route: 048
     Dates: start: 20040706
  2. HEPARIN [Concomitant]
  3. DOXERCALCEROL [Concomitant]
  4. EPOGEN [Concomitant]
  5. QUININE SULFATE [Concomitant]
  6. VALSARTAN [Concomitant]
  7. ASPIRIN [Concomitant]
  8. GLIPIZIDE [Concomitant]
  9. LOVASTATIN [Concomitant]
  10. AMLODIPINE BESYLATE [Concomitant]
  11. RANITIDINE [Concomitant]
  12. DOCUSATE SODIUM [Concomitant]
  13. VENOFER [Concomitant]

REACTIONS (2)
  - NAUSEA [None]
  - VOMITING [None]
